FAERS Safety Report 7242627-8 (Version None)
Quarter: 2011Q1

REPORT INFORMATION
  Report Type: 
  Country: None (occurrence: None)
  Receive Date: 20110125
  Receipt Date: 20110114
  Transmission Date: 20110831
  Serious: Yes (Hospitalization)
  Sender: FDA-Public Use
  Company Number: GB-ALLERGAN-1100548US

PATIENT
  Age: 69 Year
  Weight: 65 kg

DRUGS (2)
  1. BLINDED BOTULINUM TOXIN TYPE A - GENERAL (9060X) [Suspect]
     Indication: HYPERTONIC BLADDER
     Dosage: 200 UNITS, SINGLE
     Route: 030
     Dates: start: 20090626, end: 20090626
  2. PLACEBO [Suspect]
     Indication: HYPERTONIC BLADDER
     Dosage: 200 UNITS, SINGLE
     Route: 030
     Dates: start: 20090626, end: 20090626

REACTIONS (1)
  - URINARY TRACT INFECTION [None]
